FAERS Safety Report 5106671-9 (Version None)
Quarter: 2006Q3

REPORT INFORMATION
  Report Type: 
  Country: None (occurrence: None)
  Receive Date: 20060913
  Receipt Date: 20060825
  Transmission Date: 20061208
  Serious: No
  Sender: FDA-Public Use
  Company Number: IT200609000515

PATIENT
  Age: 69 Year
  Sex: Female

DRUGS (9)
  1. ZYPREXA [Suspect]
     Indication: PSYCHOTIC DISORDER
     Dosage: DAILY (1/D), ORAL; 20 MG, DAILY (1/D), ORAL
     Route: 048
     Dates: start: 20020101, end: 20060601
  2. ZYPREXA [Suspect]
     Indication: PSYCHOTIC DISORDER
     Dosage: DAILY (1/D), ORAL; 20 MG, DAILY (1/D), ORAL
     Route: 048
     Dates: start: 20060601, end: 20060812
  3. HALOPERIDOL [Concomitant]
  4. TALOFEN (PROMAZINE HYDROCHLORIDE) [Concomitant]
  5. VALDORM (FLURAZEPAM HYDROCHLORIDE) [Concomitant]
  6. NORVASC [Concomitant]
  7. RAMIPRIL [Concomitant]
  8. CARDURA [Concomitant]
  9. ALENDRONATE SODIUM [Concomitant]

REACTIONS (1)
  - PLATELET COUNT DECREASED [None]
